FAERS Safety Report 4352650-9 (Version None)
Quarter: 2004Q2

REPORT INFORMATION
  Report Type: 
  Country: None (occurrence: None)
  Receive Date: 20040504
  Receipt Date: 20040426
  Transmission Date: 20050107
  Serious: Yes (Disabling, Other)
  Sender: FDA-Public Use
  Company Number: GB-MERCK-0404GBR00204

PATIENT
  Age: 74 Year
  Sex: Female
  Weight: 71 kg

DRUGS (4)
  1. LEVOTHYROXINE SODIUM [Concomitant]
     Route: 065
     Dates: start: 19941228
  2. MELOXICAM [Concomitant]
     Route: 065
     Dates: start: 19970804
  3. POTASSIUM BICARBONATE AND SODIUM ALGINATE [Concomitant]
     Route: 065
     Dates: start: 19970509
  4. VIOXX [Suspect]
     Indication: LOCALISED OSTEOARTHRITIS
     Route: 048
     Dates: start: 20040331, end: 20040420

REACTIONS (2)
  - ABDOMINAL DISCOMFORT [None]
  - DIARRHOEA [None]
